FAERS Safety Report 13142644 (Version 2)
Quarter: 2017Q2

REPORT INFORMATION
  Report Type: Spontaneous
  Country: US (occurrence: US)
  Receive Date: 20170123
  Receipt Date: 20170419
  Transmission Date: 20170830
  Serious: Yes (Death, Hospitalization, Other)
  Sender: FDA-Public Use
  Company Number: US-BAUSCH-BL-2017-001753

PATIENT
  Age: 63 Year
  Sex: Male

DRUGS (1)
  1. XIFAXAN [Suspect]
     Active Substance: RIFAXIMIN
     Indication: PRODUCT USED FOR UNKNOWN INDICATION
     Route: 048
     Dates: start: 201312, end: 20161219

REACTIONS (5)
  - Infection [Unknown]
  - Renal failure [Fatal]
  - Fall [Unknown]
  - Liver disorder [Fatal]
  - Walking disability [Unknown]

NARRATIVE: CASE EVENT DATE: 201501
